FAERS Safety Report 20833217 (Version 1)
Quarter: 2022Q2

REPORT INFORMATION
  Report Type: Spontaneous
  Country: US (occurrence: US)
  Receive Date: 20220516
  Receipt Date: 20220516
  Transmission Date: 20220721
  Serious: Yes (Other)
  Sender: FDA-Public Use
  Company Number: US-MYLANLABS-2022M1035110

PATIENT
  Age: 69 Year
  Sex: Female
  Weight: 72.57 kg

DRUGS (5)
  1. PANTOPRAZOLE SODIUM [Suspect]
     Active Substance: PANTOPRAZOLE SODIUM
     Indication: Gastrooesophageal reflux disease
     Dosage: 40 MILLIGRAM, BID
     Route: 048
     Dates: start: 20220430, end: 20220506
  2. PANTOPRAZOLE SODIUM [Suspect]
     Active Substance: PANTOPRAZOLE SODIUM
     Dosage: UNK
     Route: 048
     Dates: start: 20220506
  3. ASPIRIN [Concomitant]
     Active Substance: ASPIRIN
     Dosage: UNK, LOW DOSE
  4. BUDESONIDE [Concomitant]
     Active Substance: BUDESONIDE
     Dosage: UNK
  5. XYZAL [Concomitant]
     Active Substance: LEVOCETIRIZINE DIHYDROCHLORIDE
     Dosage: UNK

REACTIONS (11)
  - Poisoning [Unknown]
  - Illness [Unknown]
  - Back pain [Unknown]
  - Influenza like illness [Unknown]
  - Lymphadenopathy [Unknown]
  - Dysphagia [Unknown]
  - Dyspnoea [Unknown]
  - Pyrexia [Unknown]
  - Hypertension [Unknown]
  - Arthralgia [Unknown]
  - Nausea [Unknown]

NARRATIVE: CASE EVENT DATE: 20220430
